FAERS Safety Report 9982767 (Version 1)
Quarter: 2014Q1

REPORT INFORMATION
  Report Type: Report from Study
  Country: US (occurrence: US)
  Receive Date: 20140307
  Receipt Date: 20140307
  Transmission Date: 20141002
  Serious: No
  Sender: FDA-Public Use
  Company Number: US-ABBVIE-13P-163-1180938-00

PATIENT
  Age: 66 Year
  Sex: Female

DRUGS (9)
  1. HUMIRA [Suspect]
     Indication: PSORIATIC ARTHROPATHY
     Dates: start: 20131202
  2. METFORMIN [Concomitant]
     Indication: DIABETES MELLITUS
  3. ONGLYZA [Concomitant]
     Indication: DIABETES MELLITUS
  4. CELEBREX [Concomitant]
     Indication: ARTHRALGIA
  5. PREMPRO [Concomitant]
     Indication: POSTMENOPAUSE
     Dosage: 0.3/1.5 MG
  6. PREMPRO [Concomitant]
     Indication: HOT FLUSH
  7. GLIMEPIRIDE [Concomitant]
     Indication: DIABETES MELLITUS
  8. CYCLOBENZAPRINE [Concomitant]
     Indication: MUSCLE SPASMS
  9. SORIATANE [Concomitant]
     Indication: PSORIASIS

REACTIONS (1)
  - Injection site haemorrhage [Recovered/Resolved]
